FAERS Safety Report 7911432-9 (Version None)
Quarter: 2011Q4

REPORT INFORMATION
  Report Type: 
  Country: None (occurrence: None)
  Receive Date: 20111101
  Receipt Date: 20101020
  Transmission Date: 20120403
  Serious: Yes (Other)
  Sender: FDA-Public Use
  Company Number: 251440USA

PATIENT
  Age: 32 Year
  Sex: Female

DRUGS (4)
  1. ADALIMUMAB [Suspect]
     Indication: CROHN'S DISEASE
     Dosage: 40 MG, 1 IN 1 WEEK, 40 MG 1 IN 2 WEEKS, SUBCUTANEOUS
     Route: 058
     Dates: end: 20100601
  2. MERCAPTOPURINE [Suspect]
     Indication: CROHN'S DISEASE
     Dates: end: 20090101
  3. UNKNOWN ANTIBIOTICS [Concomitant]
  4. AMITRIPTYLINE HCL [Concomitant]

REACTIONS (2)
  - TONGUE ULCERATION [None]
  - TONGUE NEOPLASM MALIGNANT STAGE UNSPECIFIED [None]
